FAERS Safety Report 19629826 (Version 1)
Quarter: 2021Q3

REPORT INFORMATION
  Report Type: Report from Study
  Country: US (occurrence: US)
  Receive Date: 20210728
  Receipt Date: 20210728
  Transmission Date: 20211014
  Serious: Yes (Hospitalization, Other)
  Sender: FDA-Public Use
  Company Number: US-OTSUKA-2021_026000

PATIENT
  Age: 83 Year
  Sex: Male

DRUGS (1)
  1. CEDAZURIDINE AND DECITABINE [Suspect]
     Active Substance: CEDAZURIDINE\DECITABINE
     Indication: MYELODYSPLASTIC SYNDROME
     Dosage: 35?100 MG (35 MG DECITABINE AND 100 MG CEDAZURIDINE) QD ON DAYS 1 TO 5 OF EVERY 28 DAY CYCLE
     Route: 065
     Dates: start: 20210130

REACTIONS (3)
  - Fatigue [Not Recovered/Not Resolved]
  - Transfusion [Not Recovered/Not Resolved]
  - Somnolence [Not Recovered/Not Resolved]

NARRATIVE: CASE EVENT DATE: 20210723
